FAERS Safety Report 8129967-5 (Version None)
Quarter: 2012Q1

REPORT INFORMATION
  Report Type: 
  Country: None (occurrence: None)
  Receive Date: 20120210
  Receipt Date: 20120202
  Transmission Date: 20120608
  Serious: Yes (Other)
  Sender: FDA-Public Use
  Company Number: US-ABBOTT-12P-163-0901654-00

PATIENT
  Age: 30 Year
  Sex: Female

DRUGS (13)
  1. LEXAPRO [Concomitant]
     Indication: DEPRESSION
     Dosage: DAILY
  2. CHOLESTYRAMINE [Concomitant]
     Indication: SHORT-BOWEL SYNDROME
     Dosage: 4GM IN 8OZ WATER DAILY
  3. AMITRIPTYLINE HCL [Concomitant]
     Indication: SLEEP DISORDER THERAPY
     Dosage: DAILY AT BEDTIME
  4. ROBINFUL FORTE [Concomitant]
     Indication: IMPAIRED GASTRIC EMPTYING
     Dosage: 2MG EVERY 12 HOURS
  5. VICODIN [Concomitant]
     Indication: PAIN
  6. VICODIN [Concomitant]
     Indication: CROHN'S DISEASE
     Dosage: AS REQUIRED
  7. HUMIRA [Suspect]
     Indication: CROHN'S DISEASE
     Dates: start: 20110201
  8. FIORICET [Concomitant]
     Indication: MIGRAINE
  9. MERCAPTOPURINE [Concomitant]
     Indication: PRODUCT USED FOR UNKNOWN INDICATION
     Dosage: DAILY
  10. ROBINFUL FORTE [Concomitant]
     Indication: GASTROOESOPHAGEAL REFLUX DISEASE
  11. ROBAXIN [Concomitant]
     Indication: MUSCLE RELAXANT THERAPY
     Dosage: 500MG AS REQUIRED FOUR TIMES A DAY
  12. GABAPENTIN [Concomitant]
     Indication: PRODUCT USED FOR UNKNOWN INDICATION
  13. PROPRANOLOL [Concomitant]
     Indication: HYPERTENSION
     Dosage: 40MG 1.5 TABLETS THREE TIMES A DAY

REACTIONS (8)
  - ULCER [None]
  - INJECTION SITE URTICARIA [None]
  - INJECTION SITE ERYTHEMA [None]
  - INJECTION SITE PAIN [None]
  - INJECTION SITE HAEMATOMA [None]
  - IMPAIRED GASTRIC EMPTYING [None]
  - INJECTION SITE HAEMORRHAGE [None]
  - ABDOMINAL ADHESIONS [None]
